FAERS Safety Report 18493848 (Version 2)
Quarter: 2022Q2

REPORT INFORMATION
  Report Type: Report from Study
  Country: US (occurrence: US)
  Receive Date: 20201111
  Receipt Date: 20220510
  Transmission Date: 20220721
  Serious: Yes (Hospitalization, Other)
  Sender: FDA-Public Use
  Company Number: US-TAKEDA-US201901611

PATIENT
  Age: 59 Year
  Sex: Female
  Weight: 61 kg

DRUGS (23)
  1. TEDUGLUTIDE [Suspect]
     Active Substance: TEDUGLUTIDE
     Indication: Short-bowel syndrome
     Dosage: 5 MILLIGRAM, QD
     Route: 042
     Dates: start: 20171013, end: 20171205
  2. TEDUGLUTIDE [Suspect]
     Active Substance: TEDUGLUTIDE
     Indication: Short-bowel syndrome
     Dosage: 5 MILLIGRAM, QD
     Route: 042
     Dates: start: 20171013, end: 20171205
  3. TEDUGLUTIDE [Suspect]
     Active Substance: TEDUGLUTIDE
     Indication: Short-bowel syndrome
     Dosage: 5 MILLIGRAM, QD
     Route: 042
     Dates: start: 20171013, end: 20171205
  4. TEDUGLUTIDE [Suspect]
     Active Substance: TEDUGLUTIDE
     Indication: Short-bowel syndrome
     Dosage: 5 MILLIGRAM, QD
     Route: 042
     Dates: start: 20171013, end: 20171205
  5. TEDUGLUTIDE [Suspect]
     Active Substance: TEDUGLUTIDE
     Dosage: 5 MILLIGRAM, 4/WEEK
     Route: 042
     Dates: start: 20180711, end: 20180911
  6. TEDUGLUTIDE [Suspect]
     Active Substance: TEDUGLUTIDE
     Dosage: 5 MILLIGRAM, 4/WEEK
     Route: 042
     Dates: start: 20180711, end: 20180911
  7. TEDUGLUTIDE [Suspect]
     Active Substance: TEDUGLUTIDE
     Dosage: 5 MILLIGRAM, 4/WEEK
     Route: 042
     Dates: start: 20180711, end: 20180911
  8. TEDUGLUTIDE [Suspect]
     Active Substance: TEDUGLUTIDE
     Dosage: 5 MILLIGRAM, 4/WEEK
     Route: 042
     Dates: start: 20180711, end: 20180911
  9. LIDOCAINE [Concomitant]
     Active Substance: LIDOCAINE
     Indication: Short-bowel syndrome
  10. DAPTOMYCIN [Concomitant]
     Active Substance: DAPTOMYCIN
     Indication: Infection
     Dosage: 355 MILLIGRAM, QD
     Route: 042
     Dates: start: 20181020, end: 20181022
  11. ERTAPENEM [Concomitant]
     Active Substance: ERTAPENEM
     Indication: Infection
  12. MELOXICAM [Concomitant]
     Active Substance: MELOXICAM
     Indication: Short-bowel syndrome
  13. ZOSYN [Concomitant]
     Active Substance: PIPERACILLIN SODIUM\TAZOBACTAM SODIUM
     Indication: Sepsis
     Dosage: 3 GRAM, QID
     Route: 042
     Dates: start: 20200922, end: 20201016
  14. VANCOMYCIN [Concomitant]
     Active Substance: VANCOMYCIN
     Indication: Sepsis
     Dosage: 1250 MILLIGRAM, QD
     Route: 042
     Dates: start: 20200922, end: 20201016
  15. VANCOMYCIN [Concomitant]
     Active Substance: VANCOMYCIN
     Indication: Bacteraemia
     Dosage: 2.50 MILLILITER, BID
     Route: 042
     Dates: start: 20200115, end: 20200121
  16. VANCOMYCIN [Concomitant]
     Active Substance: VANCOMYCIN
     Indication: Staphylococcal bacteraemia
     Dosage: 1 GRAM, QD
     Route: 042
     Dates: start: 20190628, end: 20190706
  17. PIPERACILLIN AND TAZOBACTAM [Concomitant]
     Active Substance: PIPERACILLIN SODIUM\TAZOBACTAM SODIUM
     Indication: Infection
     Dosage: 3.38 GRAM, TID
     Route: 042
     Dates: start: 20181020, end: 20201022
  18. ONDANSETRON [Concomitant]
     Active Substance: ONDANSETRON
     Indication: Nausea
     Dosage: 500 MILLILITER, SINGLE
     Route: 042
     Dates: start: 20191118, end: 20191118
  19. HYDROMORPHONE [Concomitant]
     Active Substance: HYDROMORPHONE
     Indication: Abdominal pain
     Dosage: 1 MILLIGRAM, SINGLE
     Route: 042
     Dates: start: 20191118, end: 20191118
  20. BENADRYL [Concomitant]
     Active Substance: DIPHENHYDRAMINE HYDROCHLORIDE
     Indication: Abdominal pain
     Dosage: 25 MILLIGRAM
     Route: 042
     Dates: start: 20191118, end: 20191118
  21. CEPHALEXIN [Concomitant]
     Active Substance: CEPHALEXIN
     Indication: Cellulitis
     Dosage: 500 MILLIGRAM, QID
     Route: 048
     Dates: start: 20191106, end: 20191113
  22. MICAFUNGIN [Concomitant]
     Active Substance: MICAFUNGIN
     Indication: Vascular device infection
     Dosage: 100.00 MILLIGRAM, QD
     Route: 042
     Dates: start: 20190630, end: 20190719
  23. CEFTRIAXONE [Concomitant]
     Active Substance: CEFTRIAXONE
     Indication: Bacteraemia
     Dosage: 2 GRAM, QD
     Route: 042
     Dates: start: 20190628, end: 20190706

REACTIONS (3)
  - Osteomyelitis [Recovered/Resolved]
  - Stoma site cellulitis [Recovered/Resolved]
  - Skin abrasion [Recovered/Resolved]

NARRATIVE: CASE EVENT DATE: 20181107
